FAERS Safety Report 15237788 (Version 8)
Quarter: 2022Q1

REPORT INFORMATION
  Report Type: Spontaneous
  Country: US (occurrence: US)
  Receive Date: 20180803
  Receipt Date: 20220215
  Transmission Date: 20220423
  Serious: Yes (Other)
  Sender: FDA-Public Use
  Company Number: US-PFIZER INC-2018018008

PATIENT
  Age: 64 Year
  Sex: Male
  Weight: 107.9 kg

DRUGS (12)
  1. SOMAVERT [Suspect]
     Active Substance: PEGVISOMANT
     Indication: Pituitary tumour
     Dosage: 20 MG, DAILY
     Route: 058
     Dates: start: 20110203
  2. SOMAVERT [Suspect]
     Active Substance: PEGVISOMANT
     Indication: Acromegaly
     Dosage: (30-40 MG)
  3. SOMAVERT [Suspect]
     Active Substance: PEGVISOMANT
     Dosage: 40 MG, 1X/DAY
     Dates: end: 201712
  4. SOMAVERT [Suspect]
     Active Substance: PEGVISOMANT
     Dosage: 50 MG, DAILY (TAKES TWO INJECTIONS A DAY, ONE 20MG INJECTION AND ONE 30MG INJECTION)
     Dates: start: 201801
  5. SOMAVERT [Suspect]
     Active Substance: PEGVISOMANT
     Dosage: 50 MG, DAILY (TAKES TWO INJECTIONS A DAY, ONE 20MG INJECTION AND ONE 30MG INJECTION)
     Dates: start: 201801
  6. SOMAVERT [Suspect]
     Active Substance: PEGVISOMANT
     Dosage: 120 MG, DAILY (TWO INJECTIONS EVERY MORNING)
  7. SOMAVERT [Suspect]
     Active Substance: PEGVISOMANT
     Dosage: 60 MG, DAILY
     Route: 058
     Dates: start: 2010
  8. SOMAVERT [Suspect]
     Active Substance: PEGVISOMANT
     Dosage: 60 MG, DAILY
     Route: 058
     Dates: start: 201812
  9. SOMAVERT [Suspect]
     Active Substance: PEGVISOMANT
     Dosage: 30 MG, 2X/DAY
     Route: 058
     Dates: start: 20200203, end: 20220201
  10. ELIQUIS [Concomitant]
     Active Substance: APIXABAN
     Indication: Atrial fibrillation
     Dosage: 5 MG, 2X/DAY
     Route: 048
     Dates: start: 201804
  11. METOPROLOL [Concomitant]
     Active Substance: METOPROLOL
     Indication: Hypertension
     Dosage: 50 MG, 1X/DAY
     Route: 048
  12. BENICAR [Concomitant]
     Active Substance: OLMESARTAN MEDOXOMIL
     Indication: Blood pressure abnormal
     Dosage: UNK, 1X/DAY (IT IS A TWO PART PILL IT^S 40 MG AND 25 MG)
     Route: 048

REACTIONS (12)
  - Atrial fibrillation [Unknown]
  - Off label use [Unknown]
  - Product use issue [Unknown]
  - Product dose omission issue [Unknown]
  - Magnetic resonance imaging abnormal [Unknown]
  - Insulin-like growth factor increased [Recovered/Resolved]
  - Central obesity [Unknown]
  - Hypertension [Recovered/Resolved]
  - Dizziness [Recovered/Resolved]
  - Blood glucose increased [Unknown]
  - Injection site bruising [Unknown]
  - Memory impairment [Unknown]

NARRATIVE: CASE EVENT DATE: 20110203
